FAERS Safety Report 7578202-5 (Version None)
Quarter: 2011Q2

REPORT INFORMATION
  Report Type: 
  Country: None (occurrence: None)
  Receive Date: 20110628
  Receipt Date: 20110620
  Transmission Date: 20111010
  Serious: Yes (Other)
  Sender: FDA-Public Use
  Company Number: A0933280A

PATIENT
  Age: 66 Year
  Sex: Male

DRUGS (3)
  1. SORIATANE [Suspect]
     Indication: PSORIASIS
     Dosage: 25MG PER DAY
     Route: 048
     Dates: start: 20110607, end: 20110619
  2. MICARDIS [Concomitant]
  3. ZOCOR [Concomitant]

REACTIONS (4)
  - GOUT [None]
  - ARTHRALGIA [None]
  - HAIR GROWTH ABNORMAL [None]
  - SWELLING [None]
